FAERS Safety Report 15852358 (Version 1)
Quarter: 2019Q1

REPORT INFORMATION
  Report Type: Spontaneous
  Country: US (occurrence: US)
  Receive Date: 20190122
  Receipt Date: 20190122
  Transmission Date: 20190417
  Serious: Yes (Other)
  Sender: FDA-Public Use
  Company Number: US-ROCHE-2248018

PATIENT
  Age: 20 Year
  Sex: Male

DRUGS (5)
  1. KLONOPIN [Suspect]
     Active Substance: CLONAZEPAM
     Indication: TOURETTE^S DISORDER
  2. KLONOPIN [Suspect]
     Active Substance: CLONAZEPAM
     Indication: AUTISM SPECTRUM DISORDER
     Dosage: FOR 4 YEARS
     Route: 065
  3. LATUDA [Suspect]
     Active Substance: LURASIDONE HYDROCHLORIDE
     Indication: PRODUCT USED FOR UNKNOWN INDICATION
     Route: 065
  4. RISPERDAL [Suspect]
     Active Substance: RISPERIDONE
     Indication: AUTISM SPECTRUM DISORDER
     Dosage: FOR 4 YEARS
     Route: 065
  5. RISPERDAL [Suspect]
     Active Substance: RISPERIDONE
     Indication: TOURETTE^S DISORDER

REACTIONS (6)
  - Aggression [Unknown]
  - Self-injurious ideation [Not Recovered/Not Resolved]
  - Tremor [Not Recovered/Not Resolved]
  - Drug ineffective [Unknown]
  - Headache [Unknown]
  - Mood altered [Unknown]
